FAERS Safety Report 20678709 (Version 2)
Quarter: 2022Q4

REPORT INFORMATION
  Report Type: Spontaneous
  Country: US (occurrence: US)
  Receive Date: 20220406
  Receipt Date: 20221202
  Transmission Date: 20230113
  Serious: No
  Sender: FDA-Public Use
  Company Number: US-PFIZER INC-2020423937

PATIENT
  Age: 34 Year
  Sex: Male

DRUGS (5)
  1. CAVERJECT [Suspect]
     Active Substance: ALPROSTADIL
     Dosage: 40 UG, AS NEEDED  (3X WEEK PRN ACTIVITY)
     Route: 017
     Dates: start: 20191220
  2. CAVERJECT [Suspect]
     Active Substance: ALPROSTADIL
     Dosage: 40 UG, AS NEEDED (3 X WEEK PRN PRN ACTIVITY)
     Route: 017
     Dates: start: 20221128
  3. CAVERJECT IMPULSE [Concomitant]
     Active Substance: ALPROSTADIL
     Dosage: THREE TIMES A WEEK
  4. CAVERJECT IMPULSE [Concomitant]
     Active Substance: ALPROSTADIL
     Dosage: 20 UG (3 X WEEK)
     Route: 017
     Dates: start: 20221128
  5. QUADMIX [Concomitant]
     Indication: Erectile dysfunction
     Dosage: 0.2 ML

REACTIONS (2)
  - Injection site pain [Unknown]
  - Off label use [Unknown]
